FAERS Safety Report 16573689 (Version 1)
Quarter: 2019Q3

REPORT INFORMATION
  Report Type: Spontaneous
  Country: US (occurrence: US)
  Receive Date: 20190715
  Receipt Date: 20190715
  Transmission Date: 20191004
  Serious: No
  Sender: FDA-Public Use
  Company Number: US-B. BRAUN MEDICAL INC.-2070836

PATIENT
  Age: 42 Year
  Sex: Female

DRUGS (1)
  1. LACTATED RINGERS IRRIGATION [Suspect]
     Active Substance: CALCIUM CHLORIDE\POTASSIUM CHLORIDE\SODIUM CHLORIDE\SODIUM LACTATE
     Indication: MASTOCYTOSIS
     Route: 042

REACTIONS (4)
  - Dyspnoea [None]
  - Chest pain [None]
  - Pharyngeal swelling [None]
  - Hypersensitivity [None]
